FAERS Safety Report 22292923 (Version 1)
Quarter: 2023Q2

REPORT INFORMATION
  Report Type: Report from Study
  Country: FR (occurrence: FR)
  Receive Date: 20230508
  Receipt Date: 20230508
  Transmission Date: 20230722
  Serious: Yes (Other)
  Sender: FDA-Public Use
  Company Number: FR-PFIZER INC-202300161965

PATIENT
  Sex: Female

DRUGS (3)
  1. PRAVASTATIN [Interacting]
     Active Substance: PRAVASTATIN
     Indication: Product used for unknown indication
     Dosage: 10 MILLIGRAM, DAILY
     Route: 065
  2. PAXLOVID [Interacting]
     Active Substance: NIRMATRELVIR\RITONAVIR
     Indication: COVID-19 treatment
     Dosage: UNK
     Route: 065
  3. TACROLIMUS [Interacting]
     Active Substance: TACROLIMUS
     Indication: Immunosuppressant drug therapy
     Dosage: 9 MILLIGRAM, DAILY
     Route: 065

REACTIONS (4)
  - Acute kidney injury [Unknown]
  - Immunosuppressant drug level increased [Unknown]
  - Rhabdomyolysis [Unknown]
  - Drug interaction [Unknown]
